FAERS Safety Report 9549105 (Version 1)
Quarter: 2013Q3

REPORT INFORMATION
  Report Type: Spontaneous
  Country: US (occurrence: US)
  Receive Date: 20130924
  Receipt Date: 20130924
  Transmission Date: 20140515
  Serious: No
  Sender: FDA-Public Use
  Company Number: US-009507513-1207USA002880

PATIENT
  Age: 20 Year
  Sex: Female

DRUGS (5)
  1. IMPLANON [Suspect]
     Indication: CONTRACEPTION
     Dosage: UNK
     Route: 059
     Dates: start: 20111001
  2. NOVOLOG [Concomitant]
  3. FOLIC ACID [Concomitant]
  4. VITAMINS (UNSPECIFIED) [Concomitant]
  5. NEXIAM [Concomitant]

REACTIONS (2)
  - Dysmenorrhoea [Unknown]
  - Influenza like illness [Unknown]
